FAERS Safety Report 4550578-2 (Version None)
Quarter: 2004Q4

REPORT INFORMATION
  Report Type: 
  Country: None (occurrence: None)
  Receive Date: 20041227
  Receipt Date: 20041119
  Transmission Date: 20050328
  Serious: No
  Sender: FDA-Public Use
  Company Number: 04P-163-0281046-00

PATIENT
  Age: 82 Year
  Sex: Male
  Weight: 88.4514 kg

DRUGS (18)
  1. HUMIRA [Suspect]
     Indication: RHEUMATOID ARTHRITIS
     Dosage: 40 MG, 1 IN 2 WK, SUBCUTANEOUS
     Route: 058
     Dates: start: 20041014
  2. SPIRONOLACTONE [Concomitant]
  3. FUROSEMIDE [Concomitant]
  4. DIPHENHYDRAMINE HYDROCHLORIDE [Concomitant]
  5. MITUSSIN [Concomitant]
  6. ACETYLSALICYLIC ACID SRT [Concomitant]
  7. FEPRAZONE [Concomitant]
  8. FOLIC ACID [Concomitant]
  9. FISH OIL [Concomitant]
  10. METHOTREXATE SODIUM [Concomitant]
  11. PREDNISONE [Concomitant]
  12. ACETAMINOPHEN W/ CODEINE [Concomitant]
  13. ESOMEPRAZOLE [Concomitant]
  14. DILTIAZEM [Concomitant]
  15. ATORVASTATIN [Concomitant]
  16. GLIPIZIDE [Concomitant]
  17. LEVOTHYROXINE SODIUM [Concomitant]
  18. RISEDRONATE SODIUM [Concomitant]

REACTIONS (2)
  - LIBIDO INCREASED [None]
  - RASH PRURITIC [None]
